FAERS Safety Report 8017753-6 (Version None)
Quarter: 2012Q1

REPORT INFORMATION
  Report Type: 
  Country: None (occurrence: None)
  Receive Date: 20120103
  Receipt Date: 20111228
  Transmission Date: 20120608
  Serious: No
  Sender: FDA-Public Use
  Company Number: US-PFIZER INC-2011315384

PATIENT
  Sex: Female
  Weight: 63.492 kg

DRUGS (8)
  1. XANAX [Concomitant]
     Indication: ANXIETY
     Dosage: 0.5MG OR 01MG, AS NEEDED
  2. LYRICA [Suspect]
     Indication: ATTENTION DEFICIT/HYPERACTIVITY DISORDER
     Dosage: UNK
     Route: 048
  3. ESTRACE [Concomitant]
     Indication: HORMONE LEVEL ABNORMAL
     Dosage: 1 MG, DAILY
  4. AMBIEN [Concomitant]
     Indication: SLEEP DISORDER
     Dosage: 10 MG, DAILY
  5. SYNTHROID [Concomitant]
     Indication: THYROID DISORDER
     Dosage: 100 UG, DAILY
  6. LYRICA [Suspect]
     Indication: FIBROMYALGIA
     Dosage: UNK, DAILY
     Route: 048
     Dates: start: 20111213, end: 20111222
  7. LYRICA [Suspect]
     Indication: NEURALGIA
  8. ZOLEDRONIC ACID [Concomitant]
     Indication: OSTEOPOROSIS
     Dosage: UNK

REACTIONS (3)
  - DISCOMFORT [None]
  - FEELING ABNORMAL [None]
  - ANXIETY [None]
